FAERS Safety Report 23340133 (Version 1)
Quarter: 2023Q4

REPORT INFORMATION
  Report Type: Report from Study
  Country: JP (occurrence: JP)
  Receive Date: 20231227
  Receipt Date: 20231227
  Transmission Date: 20240109
  Serious: Yes (Death)
  Sender: FDA-Public Use
  Company Number: JP-KISSEI-TV20230760_P_1

PATIENT
  Age: 69 Year
  Sex: Female
  Weight: 39 kg

DRUGS (9)
  1. AVACOPAN [Suspect]
     Active Substance: AVACOPAN
     Indication: Microscopic polyangiitis
     Dosage: 30 MILLIGRAM, Q12H
     Route: 048
     Dates: start: 20231025, end: 20231108
  2. PREDNISOLONE [Suspect]
     Active Substance: PREDNISOLONE
     Indication: Microscopic polyangiitis
     Dosage: PERORAL MEDICINE
     Route: 048
  3. PREDNISOLONE [Suspect]
     Active Substance: PREDNISOLONE
     Indication: Pneumocystis jirovecii pneumonia
     Dosage: PERORAL MEDICINE
     Route: 048
  4. PREDNISOLONE [Suspect]
     Active Substance: PREDNISOLONE
     Dosage: PERORAL MEDICINE
     Route: 048
     Dates: start: 20231025, end: 20231109
  5. PREDNISOLONE [Suspect]
     Active Substance: PREDNISOLONE
     Dosage: 80 MILLIGRAM, QD
     Route: 040
     Dates: start: 20231111, end: 20231114
  6. PREDNISOLONE [Suspect]
     Active Substance: PREDNISOLONE
     Dosage: 40 MILLIGRAM, QD
     Route: 040
     Dates: start: 20231119, end: 20231204
  7. RITUXIMAB [Suspect]
     Active Substance: RITUXIMAB
     Indication: Microscopic polyangiitis
     Dosage: 450 MILLIGRAM
     Route: 040
     Dates: start: 20230915, end: 20230915
  8. RITUXIMAB [Suspect]
     Active Substance: RITUXIMAB
     Dosage: 450 MILLIGRAM
     Route: 040
     Dates: start: 20230922, end: 20230922
  9. RITUXIMAB [Suspect]
     Active Substance: RITUXIMAB
     Dosage: UNK
     Route: 040
     Dates: start: 20231006, end: 20231006

REACTIONS (1)
  - Pneumocystis jirovecii pneumonia [Fatal]

NARRATIVE: CASE EVENT DATE: 20231108
